FAERS Safety Report 12184424 (Version 1)
Quarter: 2016Q1

REPORT INFORMATION
  Report Type: Spontaneous
  Country: DK (occurrence: DK)
  Receive Date: 20160316
  Receipt Date: 20160316
  Transmission Date: 20160526
  Serious: Yes (Hospitalization, Other)
  Sender: FDA-Public Use
  Company Number: DK-JAZZ-2016-DK-004813

PATIENT
  Age: 3 Year
  Sex: Male

DRUGS (1)
  1. XYREM [Suspect]
     Active Substance: SODIUM OXYBATE
     Indication: PRODUCT USED FOR UNKNOWN INDICATION
     Dosage: UNKNOWN DOSE
     Route: 048

REACTIONS (9)
  - Toxicity to various agents [Unknown]
  - Bradycardia [Unknown]
  - Loss of consciousness [Unknown]
  - Cyanosis [Unknown]
  - Hypertonia [Unknown]
  - Accidental exposure to product by child [Unknown]
  - Lethargy [Unknown]
  - Pupillary reflex impaired [Unknown]
  - Mydriasis [Unknown]
